FAERS Safety Report 16382142 (Version 1)
Quarter: 2019Q2

REPORT INFORMATION
  Report Type: Spontaneous
  Country: US (occurrence: US)
  Receive Date: 20190425
  Receipt Date: 20190425
  Transmission Date: 20190711
  Serious: No
  Sender: FDA-Public Use
  Company Number: None

PATIENT
  Age: 59 Year
  Sex: Male
  Weight: 98 kg

DRUGS (9)
  1. ONDANESTRON [Concomitant]
  2. HYDROCODONE/ACETAMINOPHEN [Concomitant]
     Active Substance: ACETAMINOPHEN\HYDROCODONE
  3. LEVOTHYROXINE SODIUM. [Concomitant]
     Active Substance: LEVOTHYROXINE SODIUM
  4. LENALIDOMIDE 9CC-5013) [Suspect]
     Active Substance: LENALIDOMIDE
     Dates: end: 20190326
  5. ATIVAN [Concomitant]
     Active Substance: LORAZEPAM
  6. DOXYCYCLINE. [Concomitant]
     Active Substance: DOXYCYCLINE
  7. COLACE [Concomitant]
     Active Substance: DOCUSATE SODIUM
  8. DEXAMETHASONE. [Concomitant]
     Active Substance: DEXAMETHASONE
  9. LOSARTAN. [Concomitant]
     Active Substance: LOSARTAN

REACTIONS (1)
  - Hypertension [None]

NARRATIVE: CASE EVENT DATE: 20190423
